FAERS Safety Report 4752774-8 (Version None)
Quarter: 2005Q3

REPORT INFORMATION
  Report Type: 
  Country: None (occurrence: None)
  Receive Date: 20050823
  Receipt Date: 20050809
  Transmission Date: 20060218
  Serious: Yes (Hospitalization)
  Sender: FDA-Public Use
  Company Number: 183430

PATIENT
  Age: 59 Year
  Sex: Female

DRUGS (1)
  1. AVONEX [Suspect]
     Indication: MULTIPLE SCLEROSIS
     Dosage: 30 UG; QW; IM
     Route: 030
     Dates: start: 20020606

REACTIONS (4)
  - CONDITION AGGRAVATED [None]
  - FEELING ABNORMAL [None]
  - GAIT DISTURBANCE [None]
  - MULTIPLE SCLEROSIS [None]
